FAERS Safety Report 7790195-4 (Version None)
Quarter: 2011Q3

REPORT INFORMATION
  Report Type: 
  Country: None (occurrence: None)
  Receive Date: 20110930
  Receipt Date: 20110110
  Transmission Date: 20111222
  Serious: No
  Sender: FDA-Public Use
  Company Number: US-ASTRAZENECA-2011SE01783

PATIENT
  Sex: Female
  Weight: 85.5 kg

DRUGS (1)
  1. ARIMIDEX [Suspect]
     Route: 048

REACTIONS (8)
  - HOT FLUSH [None]
  - NAUSEA [None]
  - HEADACHE [None]
  - MUSCULOSKELETAL PAIN [None]
  - COUGH [None]
  - PAIN IN EXTREMITY [None]
  - VULVOVAGINAL DRYNESS [None]
  - DRUG DOSE OMISSION [None]
